FAERS Safety Report 8157411-0 (Version None)
Quarter: 2012Q1

REPORT INFORMATION
  Report Type: 
  Country: None (occurrence: None)
  Receive Date: 20120222
  Receipt Date: 20120220
  Transmission Date: 20120608
  Serious: No
  Sender: FDA-Public Use
  Company Number: US-PFIZER INC-2011212885

PATIENT
  Sex: Female
  Weight: 61.678 kg

DRUGS (7)
  1. KLONOPIN [Concomitant]
     Indication: SLEEP DISORDER
  2. DEXILANT [Concomitant]
     Indication: CONSTIPATION
     Dosage: UNK
  3. AVINZA [Suspect]
     Dosage: 120 MG,DAILY
     Route: 048
     Dates: start: 20110818, end: 20110909
  4. KLONOPIN [Concomitant]
     Indication: ANXIETY
  5. MORPHINE SULFATE [Concomitant]
     Indication: PAIN
     Dosage: 100 MG, 2X/DAY
     Dates: start: 20030101, end: 20110816
  6. DEXILANT [Concomitant]
     Indication: ABDOMINAL DISCOMFORT
  7. KLONOPIN [Concomitant]
     Indication: PANIC ATTACK
     Dosage: 2 MG, THREE OR FOUR TIMES A DAYUNK

REACTIONS (11)
  - VOMITING [None]
  - SINUS DISORDER [None]
  - MUSCLE SPASMS [None]
  - ANXIETY [None]
  - PAIN [None]
  - DIARRHOEA [None]
  - MUSCULOSKELETAL STIFFNESS [None]
  - INSOMNIA [None]
  - DYSKINESIA [None]
  - PYREXIA [None]
  - RESTLESSNESS [None]
